FAERS Safety Report 24279236 (Version 1)
Quarter: 2024Q3

REPORT INFORMATION
  Report Type: Spontaneous
  Country: US (occurrence: US)
  Receive Date: 20240903
  Receipt Date: 20240903
  Transmission Date: 20241017
  Serious: Yes (Other)
  Sender: INCYTE
  Company Number: US-INCYTE CORPORATION-2024IN009150

PATIENT

DRUGS (1)
  1. JAKAFI [Suspect]
     Active Substance: RUXOLITINIB
     Indication: Chronic graft versus host disease
     Dosage: 5 MILLIGRAM, BID
     Route: 048
     Dates: start: 202408

REACTIONS (3)
  - Neuropathy peripheral [Unknown]
  - Palmar-plantar erythrodysaesthesia syndrome [Unknown]
  - Stomatitis [Unknown]
